FAERS Safety Report 7263228-1 (Version None)
Quarter: 2011Q1

REPORT INFORMATION
  Report Type: 
  Country: None (occurrence: None)
  Receive Date: 20110130
  Receipt Date: 20101014
  Transmission Date: 20110831
  Serious: No
  Sender: FDA-Public Use
  Company Number: US-ABBOTT-10P-163-0678370-00

PATIENT
  Age: 39 Year
  Sex: Male

DRUGS (10)
  1. ALBUTEROL [Concomitant]
     Indication: PRODUCT USED FOR UNKNOWN INDICATION
  2. AMITRIPTYLINE HYDROCHLORIDE [Concomitant]
     Indication: INSOMNIA
  3. WELLBUTRIN [Concomitant]
     Indication: DEPRESSION
  4. DICLOFENAC [Concomitant]
     Indication: INFLAMMATION
  5. EXCEDRIN (MIGRAINE) [Concomitant]
     Indication: HEADACHE
  6. WELLBUTRIN [Concomitant]
     Indication: EX-TOBACCO USER
  7. PROCHLORPER [Concomitant]
     Indication: NAUSEA
     Dosage: EVERY 8 HOURS
  8. OXYCODONE [Concomitant]
     Indication: PAIN
     Dosage: 5/325
  9. DIAZEPAM [Concomitant]
     Indication: MUSCLE RELAXANT THERAPY
  10. HUMIRA [Suspect]
     Indication: PSORIATIC ARTHROPATHY
     Dates: start: 20100301

REACTIONS (3)
  - INSOMNIA [None]
  - HEADACHE [None]
  - VOMITING [None]
